FAERS Safety Report 13070022 (Version 1)
Quarter: 2016Q4

REPORT INFORMATION
  Report Type: Spontaneous
  Country: NO (occurrence: NO)
  Receive Date: 20161228
  Receipt Date: 20161228
  Transmission Date: 20170207
  Serious: Yes (Other)
  Sender: FDA-Public Use
  Company Number: PHHY2016NO151169

PATIENT
  Sex: Female

DRUGS (4)
  1. METHOTREXATE. [Suspect]
     Active Substance: METHOTREXATE
     Indication: RHEUMATOID ARTHRITIS
     Dosage: UNK
     Route: 065
     Dates: start: 201211
  2. CARBOPLATIN. [Suspect]
     Active Substance: CARBOPLATIN
     Indication: ADRENOCORTICAL CARCINOMA
     Dosage: 4 COURSES DAY 1 AND 22
     Route: 065
     Dates: start: 201202, end: 201204
  3. PEMETREXED [Suspect]
     Active Substance: PEMETREXED
     Indication: ADRENOCORTICAL CARCINOMA
     Dosage: 800 MG DAY 1 AND 22
     Route: 065
     Dates: start: 201202, end: 201204
  4. CARBOPLATIN. [Suspect]
     Active Substance: CARBOPLATIN
     Route: 065
     Dates: start: 2013

REACTIONS (4)
  - Wrong drug administered [Unknown]
  - Non-small cell lung cancer metastatic [Recovering/Resolving]
  - Therapeutic response unexpected [Unknown]
  - Disease progression [Recovering/Resolving]
